FAERS Safety Report 10331964 (Version 2)
Quarter: 2014Q3

REPORT INFORMATION
  Report Type: Spontaneous
  Country: NO (occurrence: NO)
  Receive Date: 20140722
  Receipt Date: 20140807
  Transmission Date: 20150326
  Serious: Yes (Death)
  Sender: FDA-Public Use
  Company Number: NO-PFIZER INC-2014200943

PATIENT
  Age: 27 Year
  Sex: Male

DRUGS (6)
  1. ZOPICLONE [Interacting]
     Active Substance: ZOPICLONE
  2. QUETIAPINE FUMARATE. [Interacting]
     Active Substance: QUETIAPINE FUMARATE
  3. BUPRENORPHINE [Interacting]
     Active Substance: BUPRENORPHINE
  4. NITRAZEPAM [Interacting]
     Active Substance: NITRAZEPAM
  5. PREGABALIN. [Suspect]
     Active Substance: PREGABALIN
  6. CLONAZEPAM. [Interacting]
     Active Substance: CLONAZEPAM

REACTIONS (2)
  - Drug interaction [Fatal]
  - Depressed level of consciousness [Fatal]

NARRATIVE: CASE EVENT DATE: 201405
